FAERS Safety Report 9983879 (Version 2)
Quarter: 2014Q1

REPORT INFORMATION
  Report Type: Spontaneous
  Country: BR (occurrence: BR)
  Receive Date: 20140307
  Receipt Date: 20140307
  Transmission Date: 20141002
  Serious: Yes (Disabling)
  Sender: FDA-Public Use
  Company Number: BR-009507513-1401BRA004120

PATIENT
  Sex: Female
  Weight: 69.3 kg

DRUGS (6)
  1. PEG-INTRON [Suspect]
     Indication: HEPATITIS C
     Dosage: 100 MICROGRAM, QW
     Route: 058
     Dates: start: 201309
  2. RIBAVIRIN (NON MERCK) [Concomitant]
     Indication: HEPATITIS C
     Dosage: 750 MG, QAM
     Route: 048
     Dates: start: 201309, end: 201312
  3. RIBAVIRIN (NON MERCK) [Concomitant]
     Dosage: 500 MG, QAM
     Route: 048
     Dates: start: 201312
  4. RIBAVIRIN (NON MERCK) [Concomitant]
     Dosage: 500 MG, QPM
     Route: 048
     Dates: start: 201309
  5. PURAN T4 [Concomitant]
     Indication: HYPOTHYROIDISM
     Dosage: 25 MICROGRAM, QAM
     Route: 048
     Dates: start: 2009
  6. TORLOS [Concomitant]
     Indication: HYPERTENSION
     Dosage: 100 MG, QD
     Route: 048
     Dates: start: 2012

REACTIONS (18)
  - Disability [Not Recovered/Not Resolved]
  - Rubella [Recovered/Resolved]
  - Decreased immune responsiveness [Unknown]
  - Nasal ulcer [Not Recovered/Not Resolved]
  - Feeling abnormal [Unknown]
  - Chapped lips [Not Recovered/Not Resolved]
  - Cystitis [Recovered/Resolved]
  - Pruritus [Not Recovered/Not Resolved]
  - Weight decreased [Not Recovered/Not Resolved]
  - Depression [Recovered/Resolved]
  - Nausea [Unknown]
  - Decreased appetite [Recovered/Resolved]
  - Asthenia [Recovered/Resolved]
  - Dyspnoea [Recovered/Resolved]
  - Fatigue [Recovered/Resolved]
  - Anaemia [Recovered/Resolved]
  - Alopecia [Not Recovered/Not Resolved]
  - Pyrexia [Not Recovered/Not Resolved]
